FAERS Safety Report 24674613 (Version 2)
Quarter: 2024Q4

REPORT INFORMATION
  Report Type: Spontaneous
  Country: US (occurrence: US)
  Receive Date: 20241128
  Receipt Date: 20241227
  Transmission Date: 20250115
  Serious: No
  Sender: SCIEGEN PHARMACEUTICALS INC
  Company Number: US-SCIEGENP-2024SCSPO00405

PATIENT
  Sex: Male

DRUGS (1)
  1. CARISOPRODOL [Suspect]
     Active Substance: CARISOPRODOL
     Indication: Muscle spasms
     Route: 065

REACTIONS (2)
  - Drug ineffective [Unknown]
  - Manufacturing materials issue [Unknown]
